FAERS Safety Report 4873508-2 (Version None)
Quarter: 2005Q4

REPORT INFORMATION
  Report Type: 
  Country: None (occurrence: None)
  Receive Date: 20051201
  Receipt Date: 20050822
  Transmission Date: 20060501
  Serious: No
  Sender: FDA-Public Use
  Company Number: 2005PV001427

PATIENT
  Age: 72 Year
  Sex: Male
  Weight: 124.7392 kg

DRUGS (12)
  1. BYETTA [Suspect]
     Indication: DIABETES MELLITUS NON-INSULIN-DEPENDENT
     Dosage: 5 MCG; BID; SC
     Route: 058
     Dates: start: 20050816, end: 20050820
  2. HUMULIN 70/30 [Concomitant]
  3. ACTOS [Concomitant]
  4. LOTENSIN [Concomitant]
  5. PRAVACHOL [Concomitant]
  6. WELLBUTRIN [Concomitant]
  7. EFFEXOR [Concomitant]
  8. M.V.I. [Concomitant]
  9. WARFARIN [Concomitant]
  10. PREDNISONE [Concomitant]
  11. FOLIC ACID [Concomitant]
  12. FLOMAX [Concomitant]

REACTIONS (6)
  - BLOOD GLUCOSE INCREASED [None]
  - DECREASED APPETITE [None]
  - FATIGUE [None]
  - INFLUENZA [None]
  - MYALGIA [None]
  - NAUSEA [None]
